FAERS Safety Report 13436938 (Version 1)
Quarter: 2017Q2

REPORT INFORMATION
  Report Type: Spontaneous
  Country: US (occurrence: US)
  Receive Date: 20170413
  Receipt Date: 20170413
  Transmission Date: 20170830
  Serious: No
  Sender: FDA-Public Use
  Company Number: US-SA-2017SA005404

PATIENT
  Age: 74 Year
  Sex: Male

DRUGS (1)
  1. ALLEGRA-D [Suspect]
     Active Substance: FEXOFENADINE\PSEUDOEPHEDRINE
     Route: 065
     Dates: start: 20170104, end: 20170106

REACTIONS (9)
  - Blood urine present [Unknown]
  - Insomnia [Unknown]
  - Nervousness [Unknown]
  - Aphasia [Unknown]
  - Throat tightness [Unknown]
  - Pollakiuria [Not Recovered/Not Resolved]
  - Dizziness [Unknown]
  - Gait disturbance [Unknown]
  - Dysuria [Not Recovered/Not Resolved]
